FAERS Safety Report 24889139 (Version 1)
Quarter: 2025Q1

REPORT INFORMATION
  Report Type: Spontaneous
  Country: US (occurrence: None)
  Receive Date: 20250125
  Receipt Date: 20250125
  Transmission Date: 20250408
  Serious: Yes (Hospitalization)
  Sender: FDA-CTU
  Company Number: None

PATIENT
  Sex: Male
  Weight: 84.2 kg

DRUGS (3)
  1. CISPLATIN [Suspect]
     Active Substance: CISPLATIN
  2. IFOSFAMIDE [Suspect]
     Active Substance: IFOSFAMIDE
  3. TAXOL [Suspect]
     Active Substance: PACLITAXEL

REACTIONS (5)
  - Nausea [None]
  - Vomiting [None]
  - Mucosal inflammation [None]
  - Febrile neutropenia [None]
  - Hypophagia [None]

NARRATIVE: CASE EVENT DATE: 20210203
